FAERS Safety Report 6980999-X (Version None)
Quarter: 2010Q3

REPORT INFORMATION
  Report Type: 
  Country: None (occurrence: None)
  Receive Date: 20100914
  Receipt Date: 20100906
  Transmission Date: 20110219
  Serious: Yes (Other)
  Sender: FDA-Public Use
  Company Number: B0674290A

PATIENT
  Age: 56 Year
  Sex: Female

DRUGS (1)
  1. BUPROPION HCL [Suspect]
     Indication: DEPRESSION
     Route: 065

REACTIONS (2)
  - PSORIASIS [None]
  - STEVENS-JOHNSON SYNDROME [None]
